FAERS Safety Report 8516774 (Version 2)
Quarter: 2013Q2

REPORT INFORMATION
  Report Type: Spontaneous
  Country: US (occurrence: US)
  Receive Date: 20120417
  Receipt Date: 20130516
  Transmission Date: 20140414
  Serious: Yes (Other)
  Sender: FDA-Public Use
  Company Number: US-BAYER-2012-035595

PATIENT
  Age: 59 Year
  Sex: Female
  Weight: 68.03 kg

DRUGS (7)
  1. ALEVE CAPLET/TABLET,MIDOL EXTENDED RELIEF CAPLET [Suspect]
     Indication: BACK PAIN
     Dosage: 2 DF, QD
     Route: 048
     Dates: start: 2008, end: 20100922
  2. ALEVE CAPLET/TABLET,MIDOL EXTENDED RELIEF CAPLET [Suspect]
     Indication: NECK PAIN
  3. CALCIUM [Concomitant]
  4. ACIDOPHILUS [Concomitant]
  5. TYLENOL EXTRA STRENGTH [Concomitant]
  6. NEXIUM [Concomitant]
  7. MULTIVITAMINS [Concomitant]

REACTIONS (14)
  - Drug-induced liver injury [Not Recovered/Not Resolved]
  - Nausea [Not Recovered/Not Resolved]
  - Vomiting [Not Recovered/Not Resolved]
  - Pain [Not Recovered/Not Resolved]
  - Abdominal pain upper [Not Recovered/Not Resolved]
  - Emotional distress [Not Recovered/Not Resolved]
  - Quality of life decreased [Not Recovered/Not Resolved]
  - Incorrect drug administration duration [None]
  - Dyspnoea [Not Recovered/Not Resolved]
  - Jaundice [Not Recovered/Not Resolved]
  - Eye pain [Not Recovered/Not Resolved]
  - Pain of skin [Not Recovered/Not Resolved]
  - Diarrhoea [Not Recovered/Not Resolved]
  - Nausea [None]
